FAERS Safety Report 6499038-2 (Version None)
Quarter: 2009Q4

REPORT INFORMATION
  Report Type: 
  Country: None (occurrence: None)
  Receive Date: 20091215
  Receipt Date: 20091203
  Transmission Date: 20100525
  Serious: Yes (Hospitalization, Other)
  Sender: FDA-Public Use
  Company Number: DE-GILEAD-2009-0025208

PATIENT
  Age: 31 Year
  Sex: Female
  Weight: 42 kg

DRUGS (10)
  1. VIREAD [Suspect]
     Indication: HIV INFECTION
     Dates: start: 20070301
  2. VIREAD [Suspect]
  3. EMTRIVA [Suspect]
     Indication: HIV INFECTION
     Dates: start: 20070301
  4. EMTRIVA [Suspect]
  5. EFAVIRENZ [Concomitant]
     Indication: HIV INFECTION
     Dates: start: 20070301
  6. VITAMIN D3 [Concomitant]
  7. CALCIUM [Concomitant]
  8. AZITHROMYCIN [Concomitant]
  9. RIFABUTIN [Concomitant]
  10. ETHAMBUTOL HYDROCHLORIDE [Concomitant]

REACTIONS (4)
  - DRUG INTERACTION [None]
  - HYPERCALCAEMIA [None]
  - IMMUNE RECONSTITUTION SYNDROME [None]
  - RENAL FAILURE ACUTE [None]
